FAERS Safety Report 7441926-4 (Version None)
Quarter: 2011Q2

REPORT INFORMATION
  Report Type: 
  Country: None (occurrence: None)
  Receive Date: 20110428
  Receipt Date: 20110214
  Transmission Date: 20111010
  Serious: No
  Sender: FDA-Public Use
  Company Number: US-ASTRAZENECA-2010SE49741

PATIENT
  Age: 57 Year
  Sex: Female

DRUGS (3)
  1. ZOFRAN [Concomitant]
  2. POLIO [Concomitant]
  3. ZOMIG [Suspect]
     Route: 048

REACTIONS (4)
  - ROAD TRAFFIC ACCIDENT [None]
  - HYPOAESTHESIA [None]
  - HYPOAESTHESIA FACIAL [None]
  - DRUG DOSE OMISSION [None]
